FAERS Safety Report 4878670-3 (Version None)
Quarter: 2006Q1

REPORT INFORMATION
  Report Type: 
  Country: None (occurrence: None)
  Receive Date: 20060112
  Receipt Date: 20051216
  Transmission Date: 20060701
  Serious: Yes (Other)
  Sender: FDA-Public Use
  Company Number: PHNU2005DE04189

PATIENT
  Age: 61 Year
  Sex: Male
  Weight: 87 kg

DRUGS (4)
  1. LEPONEX [Suspect]
     Indication: SCHIZOPHRENIA
     Dosage: UP TO 75 MG, TID
     Route: 048
     Dates: start: 20051207
  2. LEPONEX [Suspect]
     Dosage: DOSAGE REDUCED
     Route: 048
  3. METOPROLOL SUCCINATE [Concomitant]
     Indication: HYPERTENSION
     Dosage: 0.5 DF, BID
     Route: 048
  4. FAUSTAN [Concomitant]
     Dosage: 10 MG, TID
     Route: 048
     Dates: start: 20051203

REACTIONS (6)
  - BRONCHOPNEUMONIA [None]
  - C-REACTIVE PROTEIN INCREASED [None]
  - LEUKOCYTOSIS [None]
  - NEUTROPHILIA [None]
  - PYREXIA [None]
  - TACHYCARDIA [None]
